FAERS Safety Report 10189794 (Version 1)
Quarter: 2014Q2

REPORT INFORMATION
  Report Type: Spontaneous
  Country: US (occurrence: US)
  Receive Date: 20140522
  Receipt Date: 20140522
  Transmission Date: 20141212
  Serious: Yes (Other)
  Sender: FDA-Public Use
  Company Number: US-SANOFI-AVENTIS-2013SA050166

PATIENT
  Age: 73 Year
  Sex: Male

DRUGS (4)
  1. LANTUS [Suspect]
     Indication: TYPE 1 DIABETES MELLITUS
     Dosage: TEHRAPY START DATE - 3 YEARS AGO. DOSE:12 UNIT(S)
     Route: 051
  2. LANTUS [Suspect]
     Indication: TYPE 1 DIABETES MELLITUS
     Dosage: DOSE:10 UNIT(S)
     Route: 058
  3. OPTICLICK [Suspect]
     Indication: TYPE 1 DIABETES MELLITUS
     Dosage: THERAPY START DATE - 3 YEARS AGO
  4. NOVOLOG [Concomitant]

REACTIONS (3)
  - Hypoglycaemic unconsciousness [Recovered/Resolved]
  - Blood glucose decreased [Recovered/Resolved]
  - Expired product administered [Unknown]
